FAERS Safety Report 8786233 (Version 7)
Quarter: 2019Q2

REPORT INFORMATION
  Report Type: Report from Study
  Country: GR (occurrence: GR)
  Receive Date: 20120914
  Receipt Date: 20190621
  Transmission Date: 20190711
  Serious: Yes (Death, Hospitalization)
  Sender: FDA-Public Use
  Company Number: GR-PFIZER INC-2012223362

PATIENT
  Age: 69 Year
  Sex: Male
  Weight: 73 kg

DRUGS (8)
  1. FENISTIL [Concomitant]
     Active Substance: DIMETHINDENE
     Indication: PREMEDICATION
     Dosage: 8 MG, EVERY THERAPY DAY
     Route: 042
     Dates: start: 20120719, end: 20120823
  2. ZANTAC [Concomitant]
     Active Substance: RANITIDINE HYDROCHLORIDE
     Indication: PREMEDICATION
     Dosage: 50 MG, EVERY THERAPY DAY
     Route: 042
     Dates: start: 20120719, end: 20120823
  3. ZOFRON [Concomitant]
     Active Substance: ONDANSETRON
     Indication: PREMEDICATION
     Dosage: 8 MG, EVERY THERAPY DAY
     Route: 042
     Dates: start: 20120719, end: 20120823
  4. TEMSIROLIMUS. [Suspect]
     Active Substance: TEMSIROLIMUS
     Indication: PANCREATIC CARCINOMA METASTATIC
     Dosage: 25 MG,WEEKLY
     Route: 042
     Dates: start: 20120719, end: 20120823
  5. GEMZAR [Suspect]
     Active Substance: GEMCITABINE HYDROCHLORIDE
     Indication: PANCREATIC CARCINOMA METASTATIC
     Dosage: 1800 MG, EVERY TWO WEEKS
     Route: 042
     Dates: start: 20120719, end: 20120816
  6. HUMALOG [Concomitant]
     Active Substance: INSULIN LISPRO
     Indication: DIABETES MELLITUS
     Dosage: 10 MG, 1X/DAY
     Dates: end: 20120901
  7. DEXAMETHASONE. [Concomitant]
     Active Substance: DEXAMETHASONE
     Indication: PREMEDICATION
     Dosage: 4 MG, EVERY THERAPY DAY
     Route: 042
     Dates: start: 20120719, end: 20120823
  8. Z-BEC [Concomitant]
     Active Substance: CYANOCOBALAMIN\DEXPANTHENOL\NIACINAMIDE\PYRIDOXINE HYDROCHLORIDE\RIBOFLAVIN 5^-PHOSPHATE SODIUM\THIAMINE HYDROCHLORIDE\VITAMIN B COMPLEX
     Indication: HYPERTENSION
     Dosage: 10 MG, 1X/DAY
     Dates: end: 20120901

REACTIONS (1)
  - Lung infection [Fatal]
